FAERS Safety Report 5588022-9 (Version None)
Quarter: 2008Q1

REPORT INFORMATION
  Report Type: 
  Country: None (occurrence: None)
  Receive Date: 20080111
  Receipt Date: 20080110
  Transmission Date: 20080703
  Serious: Yes (Hospitalization, Other)
  Sender: FDA-Public Use
  Company Number: PHNU2008DE00512

PATIENT
  Sex: Male

DRUGS (2)
  1. MARCUMAR [Concomitant]
  2. ZOMETA [Suspect]
     Indication: PROSTATE CANCER METASTATIC
     Route: 042

REACTIONS (8)
  - ANTIBIOTIC PROPHYLAXIS [None]
  - BONE DISORDER [None]
  - ORAL SURGERY [None]
  - OSTEONECROSIS [None]
  - PAIN IN JAW [None]
  - SUTURE RUPTURE [None]
  - TOOTH EXTRACTION [None]
  - WOUND CLOSURE [None]
